FAERS Safety Report 17675452 (Version 3)
Quarter: 2020Q4

REPORT INFORMATION
  Report Type: Spontaneous
  Country: US (occurrence: US)
  Receive Date: 20200416
  Receipt Date: 20201014
  Transmission Date: 20210113
  Serious: Yes (Hospitalization)
  Sender: FDA-Public Use
  Company Number: US-SA-2020SA097594

PATIENT

DRUGS (4)
  1. DUPIXENT [Suspect]
     Active Substance: DUPILUMAB
     Indication: ASTHMA
     Dosage: 300 MG, QOW
     Route: 058
     Dates: start: 20191201
  2. DUPIXENT [Suspect]
     Active Substance: DUPILUMAB
     Indication: PSORIASIS
  3. COSENTYX [Concomitant]
     Active Substance: SECUKINUMAB
  4. NUCALA [Concomitant]
     Active Substance: MEPOLIZUMAB

REACTIONS (10)
  - Influenza [Unknown]
  - Wheezing [Unknown]
  - Pyrexia [Unknown]
  - Nausea [Unknown]
  - Depression [Unknown]
  - Blood pressure increased [Unknown]
  - Unevaluable event [Unknown]
  - Product use in unapproved indication [Unknown]
  - Skin fissures [Unknown]
  - Drug ineffective [Unknown]

NARRATIVE: CASE EVENT DATE: 201912
